FAERS Safety Report 17069470 (Version 3)
Quarter: 2019Q4

REPORT INFORMATION
  Report Type: Report from Study
  Country: US (occurrence: US)
  Receive Date: 20191125
  Receipt Date: 20191227
  Transmission Date: 20200122
  Serious: Yes (Other)
  Sender: FDA-Public Use
  Company Number: US-ROCHE-2474178

PATIENT
  Sex: Female
  Weight: 68.55 kg

DRUGS (1)
  1. ACTEMRA [Suspect]
     Active Substance: TOCILIZUMAB
     Indication: TEMPORAL ARTERITIS
     Dosage: INJECT 162MG SUBCUTANEOUSLY EVERY WEEK
     Route: 058

REACTIONS (1)
  - Blindness unilateral [Unknown]
